FAERS Safety Report 20224364 (Version 2)
Quarter: 2022Q1

REPORT INFORMATION
  Report Type: Report from Study
  Country: US (occurrence: US)
  Receive Date: 20211223
  Receipt Date: 20220131
  Transmission Date: 20220424
  Serious: Yes (Hospitalization, Other)
  Sender: FDA-Public Use
  Company Number: US-DSJP-DSU-2021-143143

PATIENT
  Age: 38 Year
  Sex: Female
  Weight: 65.4 kg

DRUGS (4)
  1. TRASTUZUMAB DERUXTECAN [Suspect]
     Active Substance: TRASTUZUMAB DERUXTECAN
     Indication: Ovarian cancer
     Dosage: 4.4 MG/KG, ONCE EVERY 3 WK
     Route: 042
     Dates: start: 20210526, end: 20210526
  2. TRASTUZUMAB DERUXTECAN [Suspect]
     Active Substance: TRASTUZUMAB DERUXTECAN
     Dosage: 4.4 MG/KG (310 MG), ONCE EVERY 3 WK
     Route: 042
     Dates: start: 20211110, end: 20211110
  3. OLAPARIB [Suspect]
     Active Substance: OLAPARIB
     Indication: Ovarian cancer
     Dosage: 100 MG
     Route: 065
     Dates: start: 20210526, end: 20210526
  4. OLAPARIB [Suspect]
     Active Substance: OLAPARIB
     Dosage: 3200 MG
     Route: 065
     Dates: start: 20211126, end: 20211126

REACTIONS (3)
  - Anaemia [Recovered/Resolved with Sequelae]
  - Pyrexia [Recovered/Resolved with Sequelae]
  - Neutrophil count decreased [Recovered/Resolved with Sequelae]

NARRATIVE: CASE EVENT DATE: 20211126
